FAERS Safety Report 8774941 (Version 1)
Quarter: 2012Q4

REPORT INFORMATION
  Report Type: 
  Country: IT (occurrence: IT)
  Receive Date: 20120910
  Receipt Date: 20120910
  Transmission Date: 20130627
  Serious: Yes (Death, Other)
  Sender: FDA-Public Use
  Company Number: IT-ROCHE-1004857

PATIENT
  Age: 72 Year
  Sex: Female

DRUGS (11)
  1. RITUXIMAB [Suspect]
     Indication: B-CELL LYMPHOMA
     Dosage: 4 courses
     Route: 065
     Dates: end: 200610
  2. RITUXIMAB [Suspect]
     Dosage: two courses, second line threapy
     Route: 065
  3. RITUXIMAB [Suspect]
     Dosage: 4 doses
     Route: 065
  4. RITUXIMAB [Suspect]
     Dosage: 4 week course
     Route: 065
     Dates: start: 200901
  5. CYCLOPHOSPHAMIDE [Concomitant]
     Dosage: six cycles
     Route: 065
  6. MITOXANTRONE [Concomitant]
     Dosage: six cycles
     Route: 065
  7. VINCRISTINE [Concomitant]
     Dosage: six cycles
     Route: 065
  8. PREDNISONE [Concomitant]
     Dosage: six cycles
     Route: 065
  9. FLUDARABINE [Concomitant]
     Dosage: two courses
     Route: 065
  10. DEXAMETHASONE [Concomitant]
     Dosage: two courses
     Route: 065
  11. COTRIMOXAZOLE [Concomitant]
     Indication: ANTIFUNGAL PROPHYLAXIS

REACTIONS (5)
  - Shock [Fatal]
  - Visceral leishmaniasis [Not Recovered/Not Resolved]
  - Anaemia [Not Recovered/Not Resolved]
  - Thrombocytopenia [Not Recovered/Not Resolved]
  - Lymphopenia [Not Recovered/Not Resolved]
